FAERS Safety Report 17156494 (Version 1)
Quarter: 2019Q4

REPORT INFORMATION
  Report Type: Spontaneous
  Country: US (occurrence: US)
  Receive Date: 20191216
  Receipt Date: 20191216
  Transmission Date: 20200122
  Serious: No
  Sender: FDA-Public Use
  Company Number: US-009507513-1912USA006822

PATIENT
  Age: 72 Year
  Sex: Male

DRUGS (1)
  1. INTRON A [Suspect]
     Active Substance: INTERFERON ALFA-2B
     Indication: CUTANEOUS T-CELL LYMPHOMA
     Dosage: 3 MILLION INTERNATIONAL UNIT, Q3W, 6 MMU/ML OF STRENGTH
     Route: 058
     Dates: start: 20190920

REACTIONS (3)
  - Arthralgia [Recovered/Resolved]
  - Product use in unapproved indication [Unknown]
  - Dry mouth [Unknown]

NARRATIVE: CASE EVENT DATE: 2019
